FAERS Safety Report 24588065 (Version 1)
Quarter: 2024Q4

REPORT INFORMATION
  Report Type: Spontaneous
  Country: CN (occurrence: CN)
  Receive Date: 20241107
  Receipt Date: 20241107
  Transmission Date: 20250115
  Serious: Yes (Other)
  Sender: BAXTER
  Company Number: None

PATIENT
  Age: 19 Year
  Sex: Male
  Weight: 83 kg

DRUGS (4)
  1. CYCLOPHOSPHAMIDE [Suspect]
     Active Substance: CYCLOPHOSPHAMIDE
     Indication: Testis cancer
     Dosage: 2 G, ONE TIME IN ONE DAY, DILUTED WITH 20 ML OF 0.9% SODIUM CHLORIDE, START TIME: AT 15:15 HRS
     Route: 040
     Dates: start: 20240925, end: 20240925
  2. SODIUM CHLORIDE [Suspect]
     Active Substance: SODIUM CHLORIDE
     Indication: Medication dilution
     Dosage: (0.9%) 20 ML, ONE TIME IN ONE DAY, USED TO DILUTE 2 G OF CYCLOPHOSPHAMIDE, START TIME: AT 15:15 HRS
     Route: 040
     Dates: start: 20240925, end: 20240925
  3. DEXTROSE [Suspect]
     Active Substance: DEXTROSE MONOHYDRATE
     Indication: Medication dilution
     Dosage: (5%) 250 ML, ONE TIME IN ONE DAY, USED TO DILUTE 60 MG OF DOXORUBICIN HYDROCHLORIDE LIPOSOME, START
     Route: 041
     Dates: start: 20240925, end: 20240925
  4. DOXORUBICIN HYDROCHLORIDE [Suspect]
     Active Substance: DOXORUBICIN HYDROCHLORIDE
     Indication: Testis cancer
     Dosage: 60 MG, ONE TIME IN ONE DAY, DILUTED WITH 250 ML OF 5% GLUCOSE, START TIME: AT 15:15 HRS
     Route: 041
     Dates: start: 20240925, end: 20240925

REACTIONS (1)
  - Pruritus [Recovering/Resolving]

NARRATIVE: CASE EVENT DATE: 20240925
